FAERS Safety Report 7444290-X (Version None)
Quarter: 2011Q2

REPORT INFORMATION
  Report Type: 
  Country: None (occurrence: None)
  Receive Date: 20110429
  Receipt Date: 20110428
  Transmission Date: 20111010
  Serious: Yes (Hospitalization, Other)
  Sender: FDA-Public Use
  Company Number: JP-JNJFOC-20110201461

PATIENT
  Sex: Female
  Weight: 50 kg

DRUGS (10)
  1. AKINETON [Concomitant]
     Route: 048
  2. INVEGA [Suspect]
     Indication: SCHIZOPHRENIA
     Route: 048
  3. MAGNESIUM OXIDE [Concomitant]
     Route: 048
  4. ZYPREXA [Concomitant]
     Indication: PRODUCT USED FOR UNKNOWN INDICATION
     Route: 048
  5. LEVOMEPROMAZINE MALEATE [Concomitant]
     Indication: PRODUCT USED FOR UNKNOWN INDICATION
     Route: 048
  6. FLUNITRAZEPAM [Concomitant]
     Route: 048
  7. INVEGA [Suspect]
     Route: 048
  8. CARBAMAZEPINE [Concomitant]
     Indication: PRODUCT USED FOR UNKNOWN INDICATION
     Route: 048
  9. PANVITAN [Concomitant]
     Route: 048
  10. URSO 250 [Concomitant]
     Route: 048

REACTIONS (2)
  - HEPATIC FUNCTION ABNORMAL [None]
  - VOMITING [None]
